FAERS Safety Report 7517546-X (Version None)
Quarter: 2011Q2

REPORT INFORMATION
  Report Type: 
  Country: None (occurrence: None)
  Receive Date: 20110601
  Receipt Date: 20110518
  Transmission Date: 20111010
  Serious: Yes (Hospitalization)
  Sender: FDA-Public Use
  Company Number: US-ELI_LILLY_AND_COMPANY-US201104006975

PATIENT
  Sex: Female

DRUGS (19)
  1. FLONASE [Concomitant]
  2. CLARITIN [Concomitant]
  3. PRAVASTATIN [Concomitant]
  4. BYETTA [Concomitant]
  5. ADVAIR DISKUS 100/50 [Concomitant]
  6. SINGULAIR [Concomitant]
  7. PREDNISONE [Concomitant]
  8. METOPROLOL TARTRATE [Concomitant]
  9. FORTEO [Suspect]
     Indication: OSTEOPOROSIS
     Dosage: 20 UG, QD
     Dates: start: 20101101
  10. SPIRIVA [Concomitant]
  11. XANAX [Concomitant]
  12. INSULIN [Concomitant]
  13. ENALAPRIL MALEATE [Concomitant]
  14. GLIPIZIDE [Concomitant]
  15. RAMIPRIL [Concomitant]
  16. FORTEO [Suspect]
     Dosage: 20 UG, QD
  17. AVELOX [Concomitant]
  18. TOPROL-XL [Concomitant]
  19. ANAPRIL [Concomitant]

REACTIONS (5)
  - BLOOD GLUCOSE INCREASED [None]
  - CHRONIC OBSTRUCTIVE PULMONARY DISEASE [None]
  - DYSPNOEA [None]
  - BLOOD GLUCOSE DECREASED [None]
  - INJECTION SITE PAIN [None]
